FAERS Safety Report 6061756-8 (Version None)
Quarter: 2009Q1

REPORT INFORMATION
  Report Type: 
  Country: None (occurrence: None)
  Receive Date: 20090202
  Receipt Date: 20090127
  Transmission Date: 20090719
  Serious: No
  Sender: FDA-Public Use
  Company Number: US-B.I. PHARMACEUTICALS,INC./RIDGEFIELD-2009-BP-00983BP

PATIENT
  Age: 31 Year
  Sex: Female

DRUGS (1)
  1. ZANTAC 75 [Suspect]
     Indication: DYSPEPSIA
     Dosage: 300MG
     Route: 048
     Dates: start: 20090126

REACTIONS (2)
  - ACCIDENTAL OVERDOSE [None]
  - PRURITUS [None]
